FAERS Safety Report 14259230 (Version 2)
Quarter: 2017Q4

REPORT INFORMATION
  Report Type: Spontaneous
  Country: JP (occurrence: JP)
  Receive Date: 20171207
  Receipt Date: 20171226
  Transmission Date: 20180321
  Serious: Yes (Death, Hospitalization, Other)
  Sender: FDA-Public Use
  Company Number: JP-CIPLA LTD.-2017JP22614

PATIENT

DRUGS (5)
  1. CETUXIMAB. [Suspect]
     Active Substance: CETUXIMAB
     Indication: RECTAL CANCER METASTATIC
     Dosage: CYCLICAL
     Route: 065
  2. FLUOROURACIL. [Suspect]
     Active Substance: FLUOROURACIL
     Indication: RECTAL CANCER METASTATIC
     Dosage: UNK, CYCLICAL
     Route: 065
  3. FOLINIC ACID [Suspect]
     Active Substance: LEUCOVORIN
     Indication: RECTAL CANCER METASTATIC
     Dosage: UNK, CYCLICAL
     Route: 065
  4. IRINOTECAN [Suspect]
     Active Substance: IRINOTECAN
     Indication: RECTAL CANCER METASTATIC
     Dosage: UNK, CYCLICAL
     Route: 065
  5. VANCOMYCIN [Suspect]
     Active Substance: VANCOMYCIN
     Indication: PSEUDOMEMBRANOUS COLITIS
     Dosage: 0.5 G, EVERY 6 H (24.4 MG/KG/DAY)
     Route: 048

REACTIONS (6)
  - Septic shock [Unknown]
  - Multiple organ dysfunction syndrome [Fatal]
  - Drug level increased [Not Recovered/Not Resolved]
  - Intestinal obstruction [Unknown]
  - Colitis [Not Recovered/Not Resolved]
  - Neutropenia [Unknown]
